FAERS Safety Report 25490965 (Version 1)
Quarter: 2025Q2

REPORT INFORMATION
  Report Type: Spontaneous
  Country: US (occurrence: US)
  Receive Date: 20250629
  Receipt Date: 20250629
  Transmission Date: 20250717
  Serious: Yes (Hospitalization)
  Sender: RIGEL PHARMACEUTICALS
  Company Number: US-RIGEL Pharmaceuticals, INC-20250600150

PATIENT
  Sex: Female

DRUGS (1)
  1. GAVRETO [Suspect]
     Active Substance: PRALSETINIB
     Indication: Thyroid cancer
     Dosage: 400 MG QD
     Route: 048
     Dates: start: 20250325, end: 2025

REACTIONS (7)
  - Delirium [Unknown]
  - Choking [Unknown]
  - Urinary tract infection [Unknown]
  - Confusional state [Not Recovered/Not Resolved]
  - Hypomania [Unknown]
  - Pallor [Unknown]
  - Adverse event [Recovering/Resolving]

NARRATIVE: CASE EVENT DATE: 20250101
